FAERS Safety Report 10005268 (Version 2)
Quarter: 2014Q1

REPORT INFORMATION
  Report Type: Spontaneous
  Country: FR (occurrence: FR)
  Receive Date: 20140312
  Receipt Date: 20140324
  Transmission Date: 20141002
  Serious: Yes (Hospitalization)
  Sender: FDA-Public Use
  Company Number: FR-GE HEALTHCARE MEDICAL DIAGNOSTICS-OMPQ-PR-1403S-0209

PATIENT
  Age: 85 Year
  Sex: Female

DRUGS (10)
  1. OMNIPAQUE [Suspect]
     Indication: ABDOMINAL PAIN UPPER
     Dosage: DOSE NOT REPORTED
     Route: 042
     Dates: start: 20140123, end: 20140123
  2. OMNIPAQUE [Suspect]
     Indication: DIAGNOSTIC PROCEDURE
  3. LASILIX                            /00032601/ [Concomitant]
  4. LEVOTHYROX [Concomitant]
  5. ALDACTONE [Concomitant]
  6. DIFFU K [Concomitant]
  7. CYMBALTA [Concomitant]
  8. SINGULAIR [Concomitant]
  9. MYSOLINE [Concomitant]
  10. PROCORALAN [Concomitant]
     Dates: start: 20131209

REACTIONS (3)
  - Acute generalised exanthematous pustulosis [Recovered/Resolved]
  - Pyrexia [Recovered/Resolved]
  - Tremor [Recovered/Resolved]
